APPROVED DRUG PRODUCT: BENZTROPINE MESYLATE
Active Ingredient: BENZTROPINE MESYLATE
Strength: 1MG/ML
Dosage Form/Route: INJECTABLE;INJECTION
Application: A090287 | Product #001 | TE Code: AP
Applicant: HIKMA FARMACEUTICA (PORTUGAL) SA
Approved: Aug 31, 2009 | RLD: No | RS: Yes | Type: RX